FAERS Safety Report 4358999-8 (Version None)
Quarter: 2004Q2

REPORT INFORMATION
  Report Type: 
  Country: None (occurrence: None)
  Receive Date: 20040512
  Receipt Date: 20040426
  Transmission Date: 20050107
  Serious: Yes (Hospitalization)
  Sender: FDA-Public Use
  Company Number: A03200302997

PATIENT
  Age: 26 Year
  Sex: Female
  Weight: 52.1637 kg

DRUGS (5)
  1. PLAQUENIL [Suspect]
     Indication: RHEUMATOID ARTHRITIS
     Dosage: 200 MG BID - ORAL
     Route: 048
     Dates: start: 20031105, end: 20031216
  2. PLAQUENIL [Suspect]
     Indication: SYSTEMIC LUPUS ERYTHEMATOSUS
     Dosage: 200 MG BID - ORAL
     Route: 048
     Dates: start: 20031105, end: 20031216
  3. PREDNISONE [Concomitant]
  4. FOLIC ACID [Concomitant]
  5. METHOTREXATE [Concomitant]

REACTIONS (8)
  - ANOREXIA [None]
  - CHROMATURIA [None]
  - DRY MOUTH [None]
  - DYSPNOEA [None]
  - NAUSEA [None]
  - PAIN [None]
  - PYREXIA [None]
  - URTICARIA [None]
